FAERS Safety Report 4619014-1 (Version None)
Quarter: 2005Q1

REPORT INFORMATION
  Report Type: 
  Country: None (occurrence: None)
  Receive Date: 20050325
  Receipt Date: 20050322
  Transmission Date: 20050727
  Serious: Yes (Other)
  Sender: FDA-Public Use
  Company Number: US-JNJFOC-20041106744

PATIENT
  Sex: Female

DRUGS (3)
  1. DURAGESIC-100 [Suspect]
     Dosage: THREE 100 UG/HR PATCHES (PATIENT CHANGES ONE 100 UG/HR PATCH EACH DAY).
     Route: 062
     Dates: start: 19940101
  2. OXYCONTIN [Concomitant]
     Indication: THERAPEUTIC RESPONSE DECREASED
     Route: 049
     Dates: start: 19940101
  3. SEROQUEL [Concomitant]
     Indication: POST-TRAUMATIC STRESS DISORDER
     Route: 049
     Dates: start: 19940101

REACTIONS (4)
  - BILIARY DILATATION [None]
  - CHOLELITHIASIS [None]
  - CONSTIPATION [None]
  - CONVULSION [None]
